FAERS Safety Report 17459117 (Version 3)
Quarter: 2020Q2

REPORT INFORMATION
  Report Type: Report from Study
  Country: KR (occurrence: KR)
  Receive Date: 20200225
  Receipt Date: 20200421
  Transmission Date: 20200713
  Serious: Yes (Hospitalization)
  Sender: FDA-Public Use
  Company Number: KR-SUNOVION-2020DSP002872

PATIENT
  Age: 26 Year
  Sex: Male

DRUGS (58)
  1. LONASEN [Concomitant]
     Active Substance: BLONANSERIN
     Dosage: 20 MG, TID
     Route: 048
     Dates: start: 20200302, end: 20200311
  2. ATIVAN [Concomitant]
     Active Substance: LORAZEPAM
     Dosage: 2.5 MG, QID
     Route: 048
     Dates: start: 20200217, end: 20200217
  3. ATIVAN [Concomitant]
     Active Substance: LORAZEPAM
     Dosage: 0.5 MG, BID
     Route: 048
     Dates: start: 20200307
  4. BENZTROPINE. [Concomitant]
     Active Substance: BENZTROPINE
     Dosage: 1 MG, QD
     Route: 048
     Dates: start: 20200318
  5. QUETAPIN [Concomitant]
     Dosage: 75 MG, QD
     Route: 048
     Dates: start: 20200327, end: 20200328
  6. SEROQUEL XR [Concomitant]
     Active Substance: QUETIAPINE FUMARATE
     Indication: INSOMNIA
     Dosage: 400 MG, QD
     Route: 048
     Dates: start: 20200311, end: 20200311
  7. BLINDED QUETIAPINE [Suspect]
     Active Substance: QUETIAPINE
     Dosage: LURASIDONE 160 MG OR QUETIAPINE XR 600 MG
     Route: 048
     Dates: start: 20200215, end: 20200216
  8. LONASEN [Concomitant]
     Active Substance: BLONANSERIN
     Dosage: 20 MG, BID
     Route: 048
     Dates: start: 20200312
  9. ATIVAN [Concomitant]
     Active Substance: LORAZEPAM
     Indication: ANXIETY
     Dosage: 1.5 MG, TID
     Route: 048
     Dates: start: 20200205, end: 20200214
  10. ATIVAN [Concomitant]
     Active Substance: LORAZEPAM
     Dosage: 0.75 MG, QD
     Route: 048
     Dates: start: 20200306, end: 20200306
  11. INDENOL [Concomitant]
     Active Substance: PROPRANOLOL HYDROCHLORIDE
     Indication: PSYCHOTIC SYMPTOM
     Dosage: 60 MG, TID
     Route: 048
     Dates: start: 20200217, end: 20200220
  12. QUETAPIN [Concomitant]
     Dosage: 25 MG, QD
     Route: 048
     Dates: start: 20200330
  13. QUETAPIN [Concomitant]
     Indication: INSOMNIA
     Dosage: 50 MG, QD
     Route: 048
     Dates: start: 20200225, end: 20200228
  14. QUETAPIN [Concomitant]
     Dosage: 100 MG, QD
     Route: 048
     Dates: start: 20200313, end: 20200318
  15. SEROQUEL XR [Concomitant]
     Active Substance: QUETIAPINE FUMARATE
     Indication: INSOMNIA
     Dosage: 500 MG, QD
     Route: 048
     Dates: start: 20200312, end: 20200312
  16. LONASEN [Concomitant]
     Active Substance: BLONANSERIN
     Dosage: 24 MG, BID
     Route: 048
     Dates: start: 20200218, end: 20200224
  17. ATIVAN [Concomitant]
     Active Substance: LORAZEPAM
     Indication: PSYCHOTIC SYMPTOM
     Dosage: PRN
     Route: 042
     Dates: start: 20200301, end: 20200301
  18. BENZTROPINE. [Concomitant]
     Active Substance: BENZTROPINE
     Indication: PSYCHOTIC SYMPTOM
     Dosage: 1 MG, QD
     Route: 048
     Dates: start: 20200217, end: 20200226
  19. SEROQUEL XR [Concomitant]
     Active Substance: QUETIAPINE FUMARATE
     Indication: INSOMNIA
     Dosage: 200 MG, QD
     Route: 048
     Dates: start: 20200306, end: 20200308
  20. DEPAKINE CHRONO [Concomitant]
     Active Substance: VALPROATE SODIUM
     Indication: PSYCHOTIC SYMPTOM
     Dosage: 1300 MG, QD
     Route: 048
     Dates: start: 20200301, end: 20200325
  21. INDENOL [Concomitant]
     Active Substance: PROPRANOLOL HYDROCHLORIDE
     Indication: PSYCHOTIC SYMPTOM
     Dosage: 100 MG, TID
     Route: 048
     Dates: start: 20200228
  22. SOLIAN [Concomitant]
     Active Substance: AMISULPRIDE
     Indication: SCHIZOPHRENIA
     Dosage: 200 MG, QD
     Route: 048
     Dates: start: 20200318, end: 20200319
  23. SOLIAN [Concomitant]
     Active Substance: AMISULPRIDE
     Indication: SCHIZOPHRENIA
     Dosage: 600 MG, BID
     Route: 048
     Dates: start: 20200320, end: 20200320
  24. SOLIAN [Concomitant]
     Active Substance: AMISULPRIDE
     Dosage: 1800 MG, TID
     Route: 048
     Dates: start: 20200322, end: 20200322
  25. QUETAPIN [Concomitant]
     Dosage: 100 MG, QD
     Route: 048
     Dates: start: 20200323, end: 20200326
  26. SEROQUEL XR [Concomitant]
     Active Substance: QUETIAPINE FUMARATE
     Indication: INSOMNIA
     Dosage: 300 MG, QD
     Route: 048
     Dates: start: 20200305, end: 20200305
  27. SEROQUEL XR [Concomitant]
     Active Substance: QUETIAPINE FUMARATE
     Dosage: 500 MG, QD
     Route: 048
     Dates: start: 20200317, end: 20200318
  28. BLINDED QUETIAPINE [Suspect]
     Active Substance: QUETIAPINE
     Indication: SCHIZOPHRENIA
     Dosage: LURASIDONE 80 MG OR QUETIAPINE XR 300 MG
     Route: 048
     Dates: start: 20200210, end: 20200214
  29. LONASEN [Concomitant]
     Active Substance: BLONANSERIN
     Dosage: 28 MG, BID
     Route: 048
     Dates: start: 20200225, end: 20200226
  30. LONASEN [Concomitant]
     Active Substance: BLONANSERIN
     Dosage: 28 MG, TID
     Route: 048
     Dates: start: 20200227, end: 20200301
  31. ATIVAN [Concomitant]
     Active Substance: LORAZEPAM
     Indication: ANXIETY
     Dosage: 2 MG, TID
     Route: 048
     Dates: start: 20200218, end: 20200305
  32. DEPAKOTE ER [Concomitant]
     Active Substance: DIVALPROEX SODIUM
     Dosage: 1000 MG, QD
     Route: 048
     Dates: start: 20200228, end: 20200228
  33. QUETAPIN [Concomitant]
     Indication: INSOMNIA
     Dosage: 100 MG, QD
     Route: 048
     Dates: start: 20200301, end: 20200301
  34. QUETAPIN [Concomitant]
     Dosage: 150 MG, QD
     Route: 048
     Dates: start: 20200302, end: 20200304
  35. SEROQUEL XR [Concomitant]
     Active Substance: QUETIAPINE FUMARATE
     Dosage: 300 MG, QD
     Route: 048
     Dates: start: 20200309, end: 20200310
  36. SEROQUEL XR [Concomitant]
     Active Substance: QUETIAPINE FUMARATE
     Dosage: 400 MG, QD
     Route: 048
     Dates: start: 20200319, end: 20200319
  37. RIVOTRIL [Concomitant]
     Active Substance: CLONAZEPAM
     Indication: PSYCHOTIC SYMPTOM
     Dosage: 0.5 MG, QD
     Route: 048
     Dates: start: 20200301, end: 20200310
  38. RIVOTRIL [Concomitant]
     Active Substance: CLONAZEPAM
     Dosage: 1 MG, QD
     Route: 048
     Dates: start: 20200311
  39. QUETAPIN [Concomitant]
     Indication: INSOMNIA
     Dosage: 25 MG, QD
     Route: 048
     Dates: start: 20200224, end: 20200224
  40. QUETAPIN [Concomitant]
     Dosage: 100 MG, QD
     Route: 048
     Dates: start: 20200306, end: 20200311
  41. LONASEN [Concomitant]
     Active Substance: BLONANSERIN
     Indication: PSYCHOTIC SYMPTOM
     Dosage: 16 MG, BID
     Route: 048
     Dates: start: 20200215, end: 20200216
  42. ATIVAN [Concomitant]
     Active Substance: LORAZEPAM
     Indication: ANXIETY
     Dosage: 1.5 MG, TID
     Route: 048
     Dates: start: 20200215, end: 20200216
  43. NORMAL SALINE [Concomitant]
     Active Substance: SODIUM CHLORIDE
     Indication: PSYCHOTIC SYMPTOM
     Dosage: PRN
     Route: 050
     Dates: start: 20200301, end: 20200301
  44. DEPAKINE CHRONO [Concomitant]
     Active Substance: VALPROATE SODIUM
     Dosage: 1000 MG, QD
     Route: 048
     Dates: start: 20200326
  45. DEPAKOTE ER [Concomitant]
     Active Substance: DIVALPROEX SODIUM
     Indication: PSYCHOTIC SYMPTOM
     Dosage: 750 MG, BID
     Route: 048
     Dates: start: 20200218, end: 20200227
  46. SOLIAN [Concomitant]
     Active Substance: AMISULPRIDE
     Dosage: 800 MG, BID
     Route: 048
     Dates: start: 20200321, end: 20200321
  47. SOLIAN [Concomitant]
     Active Substance: AMISULPRIDE
     Dosage: 1200 MG, BID
     Route: 048
     Dates: start: 20200323
  48. QUETAPIN [Concomitant]
     Dosage: 100 MG, QD
     Route: 048
     Dates: start: 20200320, end: 20200320
  49. SEROQUEL XR [Concomitant]
     Active Substance: QUETIAPINE FUMARATE
     Dosage: 300 MG, QD
     Route: 048
     Dates: start: 20200320, end: 20200320
  50. SEROQUEL XR [Concomitant]
     Active Substance: QUETIAPINE FUMARATE
     Indication: INSOMNIA
     Dosage: 600 MG, QD
     Route: 048
     Dates: start: 20200313, end: 20200316
  51. BLINDED LURASIDONE HYDROCHLORIDE [Suspect]
     Active Substance: LURASIDONE HYDROCHLORIDE
     Indication: SCHIZOPHRENIA
     Dosage: LURASIDONE 80 MG OR QUETIAPINE XR 300 MG
     Route: 048
     Dates: start: 20200210, end: 20200214
  52. BLINDED LURASIDONE HYDROCHLORIDE [Suspect]
     Active Substance: LURASIDONE HYDROCHLORIDE
     Dosage: LURASIDONE 160 MG OR QUETIAPINE XR 600 MG
     Route: 048
     Dates: start: 20200215, end: 20200216
  53. LONASEN [Concomitant]
     Active Substance: BLONANSERIN
     Dosage: 12 MG, QD
     Route: 048
     Dates: start: 20200217, end: 20200217
  54. BENZTROPINE. [Concomitant]
     Active Substance: BENZTROPINE
     Indication: PSYCHOTIC SYMPTOM
     Dosage: 2 MG, QD
     Route: 048
     Dates: start: 20200227, end: 20200317
  55. DEPAKOTE ER [Concomitant]
     Active Substance: DIVALPROEX SODIUM
     Indication: PSYCHOTIC SYMPTOM
     Dosage: 500 MG, QD
     Route: 048
     Dates: start: 20200217, end: 20200217
  56. INDENOL [Concomitant]
     Active Substance: PROPRANOLOL HYDROCHLORIDE
     Dosage: 80 MG, TID
     Route: 048
     Dates: start: 20200221, end: 20200227
  57. QUETAPIN [Concomitant]
     Dosage: 50 MG, QD
     Route: 048
     Dates: start: 20200329, end: 20200329
  58. SEROQUEL XR [Concomitant]
     Active Substance: QUETIAPINE FUMARATE
     Dosage: 300 MG, BID
     Route: 048
     Dates: start: 20200321, end: 20200322

REACTIONS (1)
  - Psychotic symptom [Recovered/Resolved]

NARRATIVE: CASE EVENT DATE: 20200215
